FAERS Safety Report 8112683-3 (Version None)
Quarter: 2012Q1

REPORT INFORMATION
  Report Type: 
  Country: None (occurrence: None)
  Receive Date: 20120203
  Receipt Date: 20120123
  Transmission Date: 20120608
  Serious: Yes (Hospitalization, Other)
  Sender: FDA-Public Use
  Company Number: FR-UCBSA-050389

PATIENT
  Age: 40 Year
  Sex: Female

DRUGS (9)
  1. MIDAZOLAM HCL [Concomitant]
     Indication: SEDATION
     Dates: start: 20111202, end: 20111223
  2. NEXIUM [Suspect]
     Dosage: DAILY DOSE : 20 MG
     Route: 048
     Dates: start: 20111202, end: 20111218
  3. INVANZ [Suspect]
     Indication: PNEUMONIA
     Dosage: DAILY DOSE : 1 G
     Route: 042
     Dates: start: 20111212, end: 20111218
  4. SUFENTANIL MYLAN [Concomitant]
     Indication: SEDATION
     Dosage: 20 MCG DAILY
     Dates: start: 20111202, end: 20111222
  5. FENTANYL CITRATE [Concomitant]
     Dates: start: 20111202, end: 20111223
  6. KEPPRA [Suspect]
     Indication: AGITATION
     Route: 042
     Dates: start: 20111215, end: 20111218
  7. PENTOTHAL [Suspect]
     Indication: CEREBRAL HAEMORRHAGE
     Dosage: DAILY DOSE : 2 G
     Route: 042
     Dates: start: 20111202, end: 20111214
  8. NOREPINEPHRINE BITARTRATE [Concomitant]
     Indication: SEDATION
     Dates: start: 20111202, end: 20111222
  9. UMULINE [Concomitant]
     Dates: start: 20111202

REACTIONS (1)
  - AGRANULOCYTOSIS [None]
